FAERS Safety Report 9852683 (Version 1)
Quarter: 2014Q1

REPORT INFORMATION
  Report Type: Spontaneous
  Country: US (occurrence: None)
  Receive Date: 20140127
  Receipt Date: 20140127
  Transmission Date: 20141002
  Serious: No
  Sender: FDA-Public Use
  Company Number: UTC-042161

PATIENT
  Age: 48 Year
  Sex: Female
  Weight: 53.18 kg

DRUGS (2)
  1. REMODULIN [Suspect]
     Indication: PULMONARY ARTERIAL HYPERTENSION
     Dosage: 0.111 UG/KG 1 IN 1 MIN)
     Route: 058
     Dates: start: 20090416
  2. COUMADIN (COUMADIN) [Concomitant]

REACTIONS (2)
  - Cardiac disorder [None]
  - Lung disorder [None]
